FAERS Safety Report 8379803-7 (Version None)
Quarter: 2012Q1

REPORT INFORMATION
  Report Type: 
  Country: None (occurrence: None)
  Receive Date: 20120323
  Receipt Date: 20110426
  Transmission Date: 20120608
  Serious: Yes (Other)
  Sender: FDA-Public Use
  Company Number: 163-21880-11032632

PATIENT
  Age: 62 Year
  Sex: Female

DRUGS (5)
  1. NEUPOGEN [Concomitant]
  2. VALTREX [Concomitant]
  3. REVLIMID [Suspect]
     Indication: MULTIPLE MYELOMA
     Dosage: 15 MG, 1 IN 1 D, PO 25 MG, DAILY FOR 21 DAYS OFF, PO 15 MG, QD X 14 DAYS, PO
     Route: 048
     Dates: start: 20081101
  4. REVLIMID [Suspect]
     Indication: MULTIPLE MYELOMA
     Dosage: 15 MG, 1 IN 1 D, PO 25 MG, DAILY FOR 21 DAYS OFF, PO 15 MG, QD X 14 DAYS, PO
     Route: 048
     Dates: start: 20090601
  5. REVLIMID [Suspect]
     Indication: MULTIPLE MYELOMA
     Dosage: 15 MG, 1 IN 1 D, PO 25 MG, DAILY FOR 21 DAYS OFF, PO 15 MG, QD X 14 DAYS, PO
     Route: 048
     Dates: start: 20100901

REACTIONS (1)
  - WHITE BLOOD CELL COUNT DECREASED [None]
